FAERS Safety Report 8500510-1 (Version None)
Quarter: 2012Q3

REPORT INFORMATION
  Report Type: 
  Country: None (occurrence: None)
  Receive Date: 20120705
  Receipt Date: 20120705
  Transmission Date: 20120928
  Serious: Yes (Hospitalization)
  Sender: FDA-Public Use
  Company Number: None

PATIENT
  Age: 55 Year
  Sex: Male
  Weight: 84.3 kg

DRUGS (2)
  1. LISINOPRIL [Suspect]
     Indication: HYPERTENSION
     Dates: start: 20120501, end: 20120516
  2. CEFAZOLIN [Suspect]
     Indication: SURGERY
     Dates: start: 20120516, end: 20120516

REACTIONS (4)
  - ANGIOEDEMA [None]
  - COUGH [None]
  - WHEEZING [None]
  - PRURITUS [None]
